FAERS Safety Report 8868815 (Version 1)
Quarter: 2012Q4

REPORT INFORMATION
  Report Type: 
  Country: US (occurrence: US)
  Receive Date: 20121026
  Receipt Date: 20121026
  Transmission Date: 20130627
  Serious: No
  Sender: FDA-Public Use
  Company Number: US-AMGEN-USASP2012047177

PATIENT
  Age: 66 Year
  Sex: Female
  Weight: 89.8 kg

DRUGS (17)
  1. ENBREL [Suspect]
     Indication: RHEUMATOID ARTHRITIS
     Dosage: 50 mg/ml, qwk
     Dates: start: 20120607
  2. CELEXA                             /00582602/ [Concomitant]
     Dosage: 20 mg, qd
  3. SLOW FE [Concomitant]
     Dosage: 160 mg, qd
     Route: 048
  4. AMRIX [Concomitant]
     Dosage: 30 mg, qd
  5. SYNTHROID [Concomitant]
     Dosage: 200 mug, qd
  6. PLAVIX [Concomitant]
     Dosage: 75 mg, qd
  7. TRAZODONE [Concomitant]
     Dosage: 100 mg, qd
  8. LIPITOR [Concomitant]
     Dosage: 80 mg, qd
  9. TRICOR                             /00090101/ [Concomitant]
     Dosage: 145 mg, qd
  10. PERCOCET-5 [Concomitant]
     Dosage: 35-10 mg, every 6 hours
  11. FOLIC ACID [Concomitant]
     Dosage: 1 mg, qd
  12. ACTONEL [Concomitant]
     Dosage: 150 mg, qmo
  13. ASPIRIN [Concomitant]
     Dosage: 81 mg, qd
  14. HYZAAR [Concomitant]
     Dosage: 12.5-50 mg, qd
  15. IMURAN                             /00001501/ [Concomitant]
     Dosage: 50 mg, bid
  16. METHOTREXATE [Concomitant]
     Dosage: UNK
  17. PREDNISONE [Concomitant]
     Dosage: UNK
     Dates: end: 2012

REACTIONS (13)
  - Atrial tachycardia [Unknown]
  - Rheumatoid arthritis [Unknown]
  - Osteoarthritis [Unknown]
  - Osteoporosis [Unknown]
  - Hangnail [Not Recovered/Not Resolved]
  - Pain [Unknown]
  - Weight increased [Unknown]
  - Dyspnoea [Unknown]
  - Orthopnoea [Unknown]
  - Hypertension [Unknown]
  - Localised infection [Not Recovered/Not Resolved]
  - Injection site bruising [Not Recovered/Not Resolved]
  - Injection site pain [Not Recovered/Not Resolved]
